FAERS Safety Report 9150008 (Version 1)
Quarter: 2013Q1

REPORT INFORMATION
  Report Type: Spontaneous
  Country: US (occurrence: None)
  Receive Date: 20130219
  Receipt Date: 20130219
  Transmission Date: 20140127
  Serious: Yes (Other)
  Sender: FDA-Public Use
  Company Number: TPA2013A01421

PATIENT
  Sex: Female

DRUGS (1)
  1. DEXILANT [Suspect]
     Dates: start: 201211, end: 201211

REACTIONS (2)
  - Anaphylactic reaction [None]
  - Drug ineffective [None]
